FAERS Safety Report 19559702 (Version 1)
Quarter: 2021Q3

REPORT INFORMATION
  Report Type: Spontaneous
  Country: GB (occurrence: GB)
  Receive Date: 20210716
  Receipt Date: 20210716
  Transmission Date: 20211014
  Serious: Yes (Hospitalization, Other)
  Sender: FDA-Public Use
  Company Number: GB-SUN PHARMACEUTICAL INDUSTRIES LTD-2021RR-304523

PATIENT
  Age: 25 Year
  Sex: Male

DRUGS (5)
  1. BORTEZOMIB. [Suspect]
     Active Substance: BORTEZOMIB
     Indication: AUTOIMMUNE HAEMOLYTIC ANAEMIA
     Dosage: 1.3 MILLIGRAM/SQ. METER, UNK
     Route: 065
  2. TACROLIMUS. [Suspect]
     Active Substance: TACROLIMUS
     Indication: IMMUNOSUPPRESSION
     Dosage: UNK
     Route: 065
  3. PREDNISOLONE. [Suspect]
     Active Substance: PREDNISOLONE
     Indication: AUTOIMMUNE HAEMOLYTIC ANAEMIA
     Dosage: 1 MILLIGRAM/KILOGRAM, DAILY
     Route: 065
  4. MYCOPHENOLATE MOFETIL. [Suspect]
     Active Substance: MYCOPHENOLATE MOFETIL
     Indication: IMMUNOSUPPRESSION
     Dosage: UNK
     Route: 065
  5. DEXAMETHASONE. [Suspect]
     Active Substance: DEXAMETHASONE
     Indication: AUTOIMMUNE HAEMOLYTIC ANAEMIA
     Dosage: 20MG, UNK
     Route: 065

REACTIONS (5)
  - Neutropenia [Unknown]
  - Neuropathy peripheral [Unknown]
  - Intestinal pseudo-obstruction [Unknown]
  - Autoimmune haemolytic anaemia [Unknown]
  - Drug ineffective [Unknown]
